FAERS Safety Report 11784757 (Version 1)
Quarter: 2015Q4

REPORT INFORMATION
  Report Type: Spontaneous
  Country: US (occurrence: US)
  Receive Date: 20151130
  Receipt Date: 20151130
  Transmission Date: 20160305
  Serious: Yes (Other)
  Sender: FDA-Public Use
  Company Number: US-JNJFOC-20151117055

PATIENT
  Age: 52 Year
  Sex: Male
  Weight: 113.4 kg

DRUGS (15)
  1. ZYRTEC 10MG IR TABLET [Suspect]
     Active Substance: CETIRIZINE HYDROCHLORIDE
     Indication: PRODUCT USED FOR UNKNOWN INDICATION
     Route: 048
     Dates: start: 20151029
  2. ADVIL [Suspect]
     Active Substance: IBUPROFEN
     Indication: PAIN
     Dosage: THREE TABLETS SIX HOURS APART
     Route: 065
     Dates: start: 20151024, end: 20151024
  3. ZITHROMAX [Suspect]
     Active Substance: AZITHROMYCIN DIHYDRATE
     Indication: INFLAMMATION
     Route: 065
     Dates: start: 20151027, end: 20151027
  4. ZYRTEC 10MG IR TABLET [Suspect]
     Active Substance: CETIRIZINE HYDROCHLORIDE
     Route: 048
  5. ADVIL [Suspect]
     Active Substance: IBUPROFEN
     Indication: HEADACHE
     Dosage: TWO TABLETS
     Route: 065
     Dates: start: 20151102
  6. ADVIL [Suspect]
     Active Substance: IBUPROFEN
     Indication: PAIN
     Dosage: FIVE TABLETS
     Route: 065
     Dates: start: 20151101, end: 20151101
  7. ZITHROMAX [Suspect]
     Active Substance: AZITHROMYCIN DIHYDRATE
     Indication: INFLAMMATION
     Dosage: FOR 4 DAYS
     Route: 065
     Dates: start: 20151028, end: 20151030
  8. DOXYCYCLINE. [Suspect]
     Active Substance: DOXYCYCLINE
     Indication: INFECTION PROPHYLAXIS
     Dosage: ONE IN MORNING AND ONE IN AFTERNOON WITH FOOD
     Route: 065
     Dates: start: 20151031
  9. ADVIL [Suspect]
     Active Substance: IBUPROFEN
     Indication: HEADACHE
     Dosage: SIX FOR THE DAY
     Route: 065
     Dates: start: 20151031, end: 20151031
  10. TURMERIC [Concomitant]
     Active Substance: TURMERIC
     Indication: ANTIINFLAMMATORY THERAPY
     Route: 065
  11. ADVIL [Suspect]
     Active Substance: IBUPROFEN
     Indication: HEADACHE
     Dosage: FIVE TABLETS
     Route: 065
     Dates: start: 20151101, end: 20151101
  12. ADVIL [Suspect]
     Active Substance: IBUPROFEN
     Indication: HEADACHE
     Dosage: THREE TABLETS SIX HOURS APART
     Route: 065
     Dates: start: 20151024, end: 20151024
  13. ADVIL [Suspect]
     Active Substance: IBUPROFEN
     Indication: PAIN
     Dosage: SIX FOR THE DAY
     Route: 065
     Dates: start: 20151031, end: 20151031
  14. AUGMENTIN [Concomitant]
     Active Substance: AMOXICILLIN\CLAVULANATE POTASSIUM
     Indication: INFLAMMATION
     Dosage: 6 DAYS
     Route: 065
     Dates: start: 20151021, end: 20151026
  15. ADVIL [Suspect]
     Active Substance: IBUPROFEN
     Indication: PAIN
     Dosage: TWO TABLETS
     Route: 065
     Dates: start: 20151102

REACTIONS (5)
  - Cardiac flutter [Recovered/Resolved]
  - Product packaging issue [Unknown]
  - Pain [Recovered/Resolved]
  - Pulse absent [Recovered/Resolved]
  - Heart rate increased [Recovered/Resolved]

NARRATIVE: CASE EVENT DATE: 20151101
